FAERS Safety Report 9758615 (Version 1)
Quarter: 2013Q4

REPORT INFORMATION
  Report Type: Spontaneous
  Country: US (occurrence: None)
  Receive Date: 20131216
  Receipt Date: 20131216
  Transmission Date: 20140711
  Serious: No
  Sender: FDA-Public Use
  Company Number: E7389-03793-SPO-US

PATIENT
  Age: 73 Year
  Sex: Female

DRUGS (1)
  1. HALAVEN [Suspect]
     Dosage: UNKNOWN, UNKNOWN, INTRAVENOUS INFUSION? ?

REACTIONS (3)
  - Constipation [None]
  - Neuropathy peripheral [None]
  - Fatigue [None]
